FAERS Safety Report 20098242 (Version 7)
Quarter: 2022Q4

REPORT INFORMATION
  Report Type: Report from Study
  Country: US (occurrence: US)
  Receive Date: 20211122
  Receipt Date: 20221012
  Transmission Date: 20230112
  Serious: No
  Sender: FDA-Public Use
  Company Number: US-NOVARTISTESTPH-NVSC2021US265612

PATIENT
  Age: 56 Year
  Sex: Female

DRUGS (8)
  1. ENTRESTO [Suspect]
     Active Substance: SACUBITRIL\VALSARTAN
     Indication: Product used for unknown indication
     Dosage: 200 MG, BID, (SACUBITRIL:97 MG AND VALSARTAN: 103 MG)
     Route: 048
     Dates: start: 2015
  2. ENTRESTO [Suspect]
     Active Substance: SACUBITRIL\VALSARTAN
     Dosage: UNK
     Route: 048
  3. ENTRESTO [Suspect]
     Active Substance: SACUBITRIL\VALSARTAN
     Dosage: UNK
     Route: 048
  4. ENTRESTO [Suspect]
     Active Substance: SACUBITRIL\VALSARTAN
     Dosage: UNK
     Route: 048
  5. ENTRESTO [Suspect]
     Active Substance: SACUBITRIL\VALSARTAN
     Dosage: UNK, BID, (SACUBITRIL:97 MG AND VALSARTAN: 103 MG)
     Route: 048
     Dates: start: 2015
  6. FUROSEMIDE [Suspect]
     Active Substance: FUROSEMIDE
     Indication: Product used for unknown indication
     Dosage: UNK UNK, QD
     Route: 065
  7. FUROSEMIDE [Suspect]
     Active Substance: FUROSEMIDE
     Dosage: UNK UNK, BID (EVERY OTHER DAY)
     Route: 065
  8. ACETAMINOPHEN [Concomitant]
     Active Substance: ACETAMINOPHEN
     Indication: Scoliosis
     Dosage: UNK
     Route: 065

REACTIONS (7)
  - Illness [Unknown]
  - Ulcer [Unknown]
  - Hiatus hernia [Unknown]
  - Oedema peripheral [Unknown]
  - Weight decreased [Unknown]
  - Weight fluctuation [Unknown]
  - Vomiting [Unknown]

NARRATIVE: CASE EVENT DATE: 20200601
